FAERS Safety Report 21387309 (Version 1)
Quarter: 2022Q3

REPORT INFORMATION
  Report Type: Spontaneous
  Country: GB (occurrence: GB)
  Receive Date: 20220928
  Receipt Date: 20220928
  Transmission Date: 20221027
  Serious: Yes (Hospitalization, Other)
  Sender: FDA-Public Use
  Company Number: GB-MYLANLABS-2022M1097513

PATIENT
  Age: 48 Year
  Sex: Male

DRUGS (21)
  1. BACLOFEN [Suspect]
     Active Substance: BACLOFEN
     Indication: Muscle spasticity
     Dosage: 309.3 MICROGRAM, QD
     Route: 037
     Dates: start: 2020
  2. BACLOFEN [Suspect]
     Active Substance: BACLOFEN
     Dosage: 374.6 MICROGRAM, QD
     Route: 037
     Dates: start: 2020
  3. BACLOFEN [Suspect]
     Active Substance: BACLOFEN
     Dosage: 337.2 MICROGRAM, QD
     Route: 037
     Dates: start: 2020
  4. BACLOFEN [Suspect]
     Active Substance: BACLOFEN
     Dosage: 268.9 MICROGRAM, QD
     Route: 037
     Dates: start: 2020
  5. TRAMADOL [Suspect]
     Active Substance: TRAMADOL
     Indication: Analgesic therapy
     Dosage: 50 MILLIGRAM AS NEEDED INITIAL DOSE
     Route: 065
     Dates: start: 2020
  6. TRAMADOL [Suspect]
     Active Substance: TRAMADOL
     Dosage: 100 MILLIGRAM, QID THE DOSE OF TRAMADOL WAS RAPIDLY INCREASED TO 100MG REGULARLY FOUR TIMES PER DAY
     Route: 065
     Dates: start: 2020
  7. TRAMADOL [Suspect]
     Active Substance: TRAMADOL
     Dosage: UNK
     Route: 065
     Dates: start: 2020
  8. BACLOFEN [Concomitant]
     Active Substance: BACLOFEN
     Indication: Muscle spasticity
     Dosage: 30 MILLIGRAM, TID, 30MG THREE TIMES DAILY 2-3 DAYS PRIOR TO PUMP REMOVAL
     Route: 048
  9. BACLOFEN [Concomitant]
     Active Substance: BACLOFEN
     Dosage: 30 MILLIGRAM, QID, 30MG FOUR TIMES A DAY ON DAY OF PUMP REMOVAL AND 3 DAYS POST SURGERY
     Route: 048
  10. TIZANIDINE [Concomitant]
     Active Substance: TIZANIDINE
     Indication: Muscle spasticity
     Dosage: 2 MILLIGRAM, BID ON DAY OF PUMP REMOVAL
     Route: 048
     Dates: start: 2020
  11. TIZANIDINE [Concomitant]
     Active Substance: TIZANIDINE
     Dosage: 4 MILLIGRAM, QID 3 DAYS POSTSURGERY
     Route: 048
     Dates: start: 2020
  12. TEICOPLANIN [Concomitant]
     Active Substance: TEICOPLANIN
     Indication: Antibiotic therapy
     Dosage: UNK
     Route: 042
     Dates: start: 2020
  13. MEROPENEM [Concomitant]
     Active Substance: MEROPENEM
     Indication: Antibiotic therapy
     Dosage: UNK
     Route: 042
     Dates: start: 2020
  14. ERTAPENEM [Concomitant]
     Active Substance: ERTAPENEM
     Indication: Antibiotic therapy
     Dosage: UNK
     Route: 065
     Dates: start: 2020
  15. CLONAZEPAM [Concomitant]
     Active Substance: CLONAZEPAM
     Indication: Muscle spasticity
     Dosage: 250 MICROGRAM, QD 2-3 DAYS PRIOR TO PUMP REMOVAL
     Route: 065
     Dates: start: 2020
  16. CLONAZEPAM [Concomitant]
     Active Substance: CLONAZEPAM
     Dosage: 500 MICROGRAM, QD DAY OF PUMP REMOVAL
     Route: 065
     Dates: start: 2020
  17. CLONAZEPAM [Concomitant]
     Active Substance: CLONAZEPAM
     Dosage: 250 MICROGRAM AS REQUIRED AFTER 3 DAYS OF POSTSURGERY
     Route: 065
     Dates: start: 2020
  18. PROPOFOL [Concomitant]
     Active Substance: PROPOFOL
     Indication: Seizure prophylaxis
     Dosage: 20 MILLIGRAM, QH
     Route: 042
     Dates: start: 2020
  19. PROPOFOL [Concomitant]
     Active Substance: PROPOFOL
     Dosage: 10 MILLIGRAM, QH GRADUALLY TITRATED OVER 48 HOURS
     Route: 042
     Dates: start: 2020
  20. PROPOFOL [Concomitant]
     Active Substance: PROPOFOL
     Dosage: 60 MILLIGRAM, QH
     Route: 042
     Dates: start: 2020
  21. ACETAMINOPHEN [Concomitant]
     Active Substance: ACETAMINOPHEN
     Indication: Analgesic therapy
     Dosage: 1 GRAM, QID DAY OF PUMP REMOVAL AND 3 DAYS POSTSURGERY
     Route: 065
     Dates: start: 2020

REACTIONS (4)
  - Rebound effect [Recovering/Resolving]
  - Muscle spasms [Recovering/Resolving]
  - Drug withdrawal syndrome [Recovering/Resolving]
  - Mental impairment [Unknown]

NARRATIVE: CASE EVENT DATE: 20200101
